FAERS Safety Report 5305081-9 (Version None)
Quarter: 2007Q2

REPORT INFORMATION
  Report Type: 
  Country: None (occurrence: None)
  Receive Date: 20070423
  Receipt Date: 20070416
  Transmission Date: 20071010
  Serious: Yes (Hospitalization)
  Sender: FDA-Public Use
  Company Number: FR-PFIZER INC-2005107359

PATIENT
  Age: 84 Year
  Sex: Female
  Weight: 52 kg

DRUGS (6)
  1. XANAX [Suspect]
     Indication: ANXIETY
     Dosage: TEXT:UNKNOWN
     Route: 048
  2. ASPEGIC 1000 [Suspect]
     Indication: ILL-DEFINED DISORDER
     Dosage: TEXT:UNKNOWN-FREQ:EVERY DAY
     Route: 048
  3. NOCTRAN 10 [Suspect]
     Indication: SLEEP DISORDER
     Dosage: DAILY DOSE:10MG-FREQ:EVERY DAY
     Route: 048
  4. VASTAREL [Suspect]
     Indication: ILL-DEFINED DISORDER
     Route: 048
  5. TRANDATE [Suspect]
     Indication: ESSENTIAL HYPERTENSION
     Route: 048
  6. SEROPRAM [Suspect]
     Indication: DYSTHYMIC DISORDER
     Route: 048

REACTIONS (5)
  - BRONCHITIS [None]
  - DYSSTASIA [None]
  - FALL [None]
  - RHABDOMYOLYSIS [None]
  - VERTIGO [None]
